FAERS Safety Report 17483716 (Version 1)
Quarter: 2020Q1

REPORT INFORMATION
  Report Type: Spontaneous
  Country: DE (occurrence: DE)
  Receive Date: 20200228
  Receipt Date: 20200228
  Transmission Date: 20200409
  Serious: Yes (Hospitalization)
  Sender: FDA-Public Use
  Company Number: DE-TOPROL ACQUISITION LLC-2020-TOP-000179

PATIENT
  Weight: 1 kg

DRUGS (4)
  1. METOPROLOL SUCCINATE. [Suspect]
     Active Substance: METOPROLOL SUCCINATE
     Indication: PRODUCT USED FOR UNKNOWN INDICATION
     Dosage: 95 MG [MORNING], 47.5 MG [NOON], 95 MG [EVENING])
     Route: 064
  2. OPIOID ANESTHETICS [Suspect]
     Active Substance: UNSPECIFIED INGREDIENT
     Indication: ANGINA PECTORIS
     Route: 064
  3. CORTICOSTEROID NOS [Suspect]
     Active Substance: CORTICOSTEROID NOS
     Indication: MATERNAL THERAPY TO ENHANCE FOETAL LUNG MATURITY
     Route: 064
  4. OPIOID ANESTHETICS [Suspect]
     Active Substance: UNSPECIFIED INGREDIENT
     Indication: SEDATION

REACTIONS (2)
  - Premature baby [Unknown]
  - Foetal growth restriction [Unknown]
